FAERS Safety Report 4307380-6 (Version None)
Quarter: 2004Q1

REPORT INFORMATION
  Report Type: 
  Country: None (occurrence: None)
  Receive Date: 20040226
  Receipt Date: 20040218
  Transmission Date: 20041129
  Serious: No
  Sender: FDA-Public Use
  Company Number: 2003UW16254

PATIENT
  Age: 14 Year
  Sex: Male
  Weight: 51.7101 kg

DRUGS (8)
  1. SEROQUEL [Suspect]
     Indication: SCHIZOPHRENIA
     Dosage: 375 MG DAILY PO
     Route: 048
  2. SEROQUEL [Suspect]
     Indication: SCHIZOPHRENIA
     Dosage: 500 MG PO
     Route: 048
  3. SEROQUEL [Suspect]
     Indication: SCHIZOPHRENIA
     Dosage: 600 MG DAILY PO
     Route: 048
     Dates: start: 20030823
  4. SEROQUEL [Suspect]
     Indication: SCHIZOPHRENIA
     Dosage: 300 MG HS PO
     Route: 048
     Dates: start: 20030923
  5. SEROQUEL [Suspect]
     Indication: SCHIZOPHRENIA
     Dosage: 200 MG PO
     Route: 048
     Dates: start: 20031008, end: 20031010
  6. SEROQUEL [Suspect]
     Indication: SCHIZOPHRENIA
     Dosage: 300 MG PO
     Route: 048
     Dates: start: 20031010
  7. DEPAKOTE [Concomitant]
  8. ABILIFY [Concomitant]

REACTIONS (3)
  - ABNORMAL BEHAVIOUR [None]
  - THINKING ABNORMAL [None]
  - VISION BLURRED [None]
